FAERS Safety Report 8255870-6 (Version None)
Quarter: 2012Q2

REPORT INFORMATION
  Report Type: 
  Country: None (occurrence: None)
  Receive Date: 20120403
  Receipt Date: 20120326
  Transmission Date: 20120825
  Serious: Yes (Hospitalization)
  Sender: FDA-Public Use
  Company Number: US-ACTELION-A-US2012-62264

PATIENT

DRUGS (5)
  1. TYVASO [Suspect]
  2. TRACLEER [Suspect]
     Indication: PULMONARY ARTERIAL HYPERTENSION
     Dosage: UNK
     Route: 048
     Dates: start: 20120208
  3. COUMADIN [Concomitant]
  4. PLAVIX [Concomitant]
  5. ADCIRCA [Concomitant]

REACTIONS (7)
  - DYSPNOEA [None]
  - HYPOTENSION [None]
  - ATRIAL FIBRILLATION [None]
  - ATRIAL FLUTTER [None]
  - FLUID RETENTION [None]
  - CHEST DISCOMFORT [None]
  - SWELLING [None]
